FAERS Safety Report 5091764-5 (Version None)
Quarter: 2006Q3

REPORT INFORMATION
  Report Type: 
  Country: None (occurrence: None)
  Receive Date: 20060829
  Receipt Date: 20060511
  Transmission Date: 20061208
  Serious: Yes (Other)
  Sender: FDA-Public Use
  Company Number: US-BRISTOL-MYERS SQUIBB COMPANY-13374566

PATIENT
  Age: 55 Year
  Sex: Male

DRUGS (10)
  1. ERBITUX [Suspect]
     Indication: OESOPHAGEAL CARCINOMA
     Dosage: FIRST INFUSION.
     Route: 041
     Dates: start: 20060505, end: 20060505
  2. ATIVAN [Concomitant]
  3. BENADRYL [Concomitant]
     Indication: PREMEDICATION
     Route: 042
     Dates: start: 20060505, end: 20060505
  4. CISPLATIN [Concomitant]
  5. CPT-11 [Concomitant]
  6. LISINOPRIL [Concomitant]
  7. NEULASTA [Concomitant]
  8. PREVACID [Concomitant]
  9. TAXOTERE [Concomitant]
  10. TYLENOL [Concomitant]
     Indication: PREMEDICATION
     Dates: start: 20060505, end: 20060505

REACTIONS (3)
  - DYSPNOEA [None]
  - HYPOTENSION [None]
  - NAUSEA [None]
